FAERS Safety Report 17426028 (Version 1)
Quarter: 2020Q1

REPORT INFORMATION
  Report Type: Spontaneous
  Country: FR (occurrence: FR)
  Receive Date: 20200217
  Receipt Date: 20200217
  Transmission Date: 20200409
  Serious: Yes (Hospitalization)
  Sender: FDA-Public Use
  Company Number: FR-MYLANLABS-2020M1015848

PATIENT
  Age: 54 Year
  Sex: Female
  Weight: 64 kg

DRUGS (17)
  1. IOMERON [Suspect]
     Active Substance: IOMEPROL
     Indication: COMPUTERISED TOMOGRAM
     Dosage: ((350 MG IODE/ML)
     Route: 042
     Dates: start: 20191125, end: 20191125
  2. C?FOTAXIME MYLAN 1 G, POUDRE POUR SOLUTION INJECTABLE (IM-IV) [Suspect]
     Active Substance: CEFOTAXIME SODIUM
     Indication: SEPTIC SHOCK
     Dosage: POSOLOGIE NON RAPPORT?E
     Route: 042
     Dates: start: 20191125, end: 20191126
  3. HYDROCORTISONE. [Suspect]
     Active Substance: HYDROCORTISONE
     Indication: SHOCK
     Dosage: POSOLOGIE NON RAPPORT?E
     Dates: start: 20191124, end: 20191125
  4. AMLOR [Concomitant]
     Active Substance: AMLODIPINE BESYLATE
  5. MIDAZOLAM MYLAN [Suspect]
     Active Substance: MIDAZOLAM HYDROCHLORIDE
     Indication: SEDATIVE THERAPY
     Dosage: POSOLOGIE NON RAPPORT?E
     Route: 042
     Dates: start: 20191124, end: 20191125
  6. HYPNOMIDATE                        /00466801/ [Suspect]
     Active Substance: ETOMIDATE
     Indication: SEDATIVE THERAPY
     Dosage: POSOLOGIE NON RAPPORT?E
     Route: 042
     Dates: start: 20191124, end: 20191125
  7. NORADRENALINE MYLAN [Suspect]
     Active Substance: NOREPINEPHRINE\NOREPINEPHRINE BITARTRATE
     Indication: HAEMODYNAMIC INSTABILITY
     Dosage: 6 MG/HEURE
     Route: 042
     Dates: start: 20191124, end: 20191125
  8. XENETIC 350 [Suspect]
     Active Substance: IOBITRIDOL
     Indication: COMPUTERISED TOMOGRAM
     Dosage: 1 1 TOTAL, DOSE NON RAPPORT?E
     Route: 042
     Dates: start: 20191124, end: 20191124
  9. LEVETIRACETAM ARROW [Concomitant]
     Active Substance: LEVETIRACETAM
  10. SUFENTANIL MYLAN [Suspect]
     Active Substance: SUFENTANIL
     Indication: SEDATIVE THERAPY
     Dosage: POSOLOGIE NON RAPPORT?E
     Route: 042
     Dates: start: 20191124, end: 20191125
  11. METRONIDAZOLE BAXTER [Suspect]
     Active Substance: METRONIDAZOLE
     Indication: LUNG DISORDER
     Dosage: POSOLOGIE NON RAPPORT?E
     Route: 042
     Dates: start: 20191125, end: 20191126
  12. FLUDROCORTISONE [Suspect]
     Active Substance: FLUDROCORTISONE
     Indication: SHOCK
     Dosage: POSOLOGIE NON RAPPORT?E
     Route: 048
     Dates: start: 20191124, end: 20191125
  13. URBANYL [Concomitant]
     Active Substance: CLOBAZAM
  14. PIPERACILLIN AND TAZOBACTAM [Suspect]
     Active Substance: PIPERACILLIN SODIUM\TAZOBACTAM SODIUM
     Indication: SEPTIC SHOCK
     Dosage: POSOLOGIE NON RAPPORT?E
     Route: 042
     Dates: start: 20191124, end: 20191125
  15. CELOCURINE                         /00057704/ [Suspect]
     Active Substance: SUCCINYLCHOLINE IODIDE
     Indication: NEUROMUSCULAR BLOCKING THERAPY
     Dosage: POSOLOGIE NON RAPPORT?E
     Route: 042
     Dates: start: 20191124, end: 20191125
  16. AUGMENTIN [Concomitant]
     Active Substance: AMOXICILLIN\CLAVULANATE POTASSIUM
  17. LOVENOX [Concomitant]
     Active Substance: ENOXAPARIN SODIUM

REACTIONS (1)
  - Dermatitis bullous [Recovering/Resolving]

NARRATIVE: CASE EVENT DATE: 20191126
